FAERS Safety Report 6446907-5 (Version None)
Quarter: 2009Q4

REPORT INFORMATION
  Report Type: 
  Country: None (occurrence: None)
  Receive Date: 20091119
  Receipt Date: 20091113
  Transmission Date: 20100525
  Serious: Yes (Hospitalization, Other)
  Sender: FDA-Public Use
  Company Number: US-TEVA-212823USA

PATIENT
  Age: 35 Year
  Sex: Female

DRUGS (2)
  1. COPAXONE [Suspect]
     Indication: MULTIPLE SCLEROSIS
     Route: 058
     Dates: start: 20020613, end: 20030101
  2. INTERFERON BETA [Suspect]
     Indication: MULTIPLE SCLEROSIS
     Route: 030
     Dates: start: 20010501

REACTIONS (4)
  - ANAPHYLACTIC SHOCK [None]
  - PNEUMOTHORAX [None]
  - PULMONARY EMBOLISM [None]
  - THROMBOSIS [None]
